FAERS Safety Report 12383408 (Version 2)
Quarter: 2016Q3

REPORT INFORMATION
  Report Type: Report from Study
  Country: BR (occurrence: BR)
  Receive Date: 20160518
  Receipt Date: 20160804
  Transmission Date: 20161109
  Serious: Yes (Hospitalization)
  Sender: FDA-Public Use
  Company Number: BR-ABBVIE-16P-020-1630950-00

PATIENT
  Sex: Female
  Weight: 55 kg

DRUGS (3)
  1. SYNTHROID [Suspect]
     Active Substance: LEVOTHYROXINE SODIUM
     Indication: AUTOIMMUNE THYROIDITIS
     Dosage: 1 TABLET OF 50 MCG AND HALF TABLET OF 25 MCG (62.5 MCG DAILY)
     Route: 048
  2. SYNTHROID [Suspect]
     Active Substance: LEVOTHYROXINE SODIUM
     Dosage: 1 TABLET OF 50 MCG AND 1 TABLET OF 25 MCG (75 MCG DAILY)
     Route: 048
     Dates: start: 20160506
  3. SYNTHROID [Suspect]
     Active Substance: LEVOTHYROXINE SODIUM
     Dosage: DAILY DOSE: 75 MCG IN 1 DAY AND 62.5 MCG NEXT DAY (EVERY OTHER DAY)
     Route: 048
     Dates: start: 2016

REACTIONS (3)
  - Abdominal discomfort [Recovered/Resolved]
  - Dengue fever [Recovered/Resolved]
  - Spondylolisthesis [Recovering/Resolving]
